FAERS Safety Report 4791809-3 (Version None)
Quarter: 2005Q4

REPORT INFORMATION
  Report Type: 
  Country: None (occurrence: None)
  Receive Date: 20051007
  Receipt Date: 20050912
  Transmission Date: 20060501
  Serious: Yes (Other)
  Sender: FDA-Public Use
  Company Number: PHNU2005DE03137

PATIENT
  Age: 69 Year
  Sex: Female
  Weight: 67 kg

DRUGS (4)
  1. CLOZARIL [Suspect]
     Indication: SCHIZOPHRENIA
     Dosage: 100 MG/DAY
     Route: 048
     Dates: start: 20050829, end: 20050913
  2. DIGITOXIN TAB [Concomitant]
     Indication: CORONARY ARTERY DISEASE
     Dosage: 0.07 MG/DAY
     Route: 048
  3. BISOHEXAL [Concomitant]
     Indication: HYPERTENSION
     Dosage: 5 MG/DAY
     Route: 048
  4. ALDACTONE [Concomitant]
     Indication: HYPERTENSION
     Dosage: 50 MG/DAY
     Route: 048

REACTIONS (5)
  - C-REACTIVE PROTEIN INCREASED [None]
  - LEUKOCYTOSIS [None]
  - LYMPHOPENIA [None]
  - NEUTROPHILIA [None]
  - PNEUMONIA [None]
